FAERS Safety Report 7381776-0 (Version None)
Quarter: 2011Q1

REPORT INFORMATION
  Report Type: 
  Country: None (occurrence: None)
  Receive Date: 20110329
  Receipt Date: 20101018
  Transmission Date: 20110831
  Serious: Yes (Hospitalization)
  Sender: FDA-Public Use
  Company Number: US-BAYER-201010205NA

PATIENT
  Sex: Female
  Weight: 68 kg

DRUGS (10)
  1. ALBUTEROL [Concomitant]
  2. COLACE [Concomitant]
  3. YAZ [Suspect]
     Indication: MENSTRUAL DISORDER
     Dosage: PHARMACY RECORDS: 21 JAN 2009 AND 23 FEB 2009.
     Route: 048
     Dates: start: 20090101, end: 20090301
  4. PROTONIX [Concomitant]
  5. VICODIN [Concomitant]
  6. IMITREX [Concomitant]
  7. COMBIVENT [Concomitant]
  8. UNCODEABLE ^UNCLASSIFIABLE^ [Concomitant]
  9. COMBIVENT [Concomitant]
     Indication: ASTHMA
  10. MAXALT [Concomitant]

REACTIONS (4)
  - HEMIPLEGIA [None]
  - SPEECH DISORDER [None]
  - AMNESIA [None]
  - EMBOLIC STROKE [None]
